FAERS Safety Report 8126024-9 (Version None)
Quarter: 2012Q1

REPORT INFORMATION
  Report Type: 
  Country: None (occurrence: None)
  Receive Date: 20120209
  Receipt Date: 20120127
  Transmission Date: 20120608
  Serious: Yes (Hospitalization, Other)
  Sender: FDA-Public Use
  Company Number: US-ROCHE-1027955

PATIENT
  Age: 64 Year
  Sex: Female
  Weight: 74.8 kg

DRUGS (2)
  1. AVASTIN [Suspect]
     Indication: OVARIAN EPITHELIAL CANCER
     Route: 042
     Dates: start: 20111006
  2. BLINDED EVEROLIMUS [Suspect]
     Indication: OVARIAN EPITHELIAL CANCER
     Route: 048
     Dates: start: 20111006

REACTIONS (4)
  - DYSPNOEA [None]
  - HYPOPHOSPHATAEMIA [None]
  - HYPOALBUMINAEMIA [None]
  - SMALL INTESTINAL OBSTRUCTION [None]
